FAERS Safety Report 14850314 (Version 2)
Quarter: 2019Q2

REPORT INFORMATION
  Report Type: Report from Study
  Country: US (occurrence: US)
  Receive Date: 20180505
  Receipt Date: 20190422
  Transmission Date: 20190711
  Serious: Yes (Other)
  Sender: FDA-Public Use
  Company Number: PHEH2018US017394

PATIENT
  Sex: Female

DRUGS (1)
  1. GILENYA [Suspect]
     Active Substance: FINGOLIMOD HYDROCHLORIDE
     Indication: MULTIPLE SCLEROSIS
     Dosage: 0.5 MG, QD
     Route: 048
     Dates: start: 20180125

REACTIONS (4)
  - Multiple sclerosis relapse [Recovering/Resolving]
  - Paraesthesia [Recovering/Resolving]
  - Abdominal discomfort [Unknown]
  - Diarrhoea [Unknown]
